FAERS Safety Report 8281297-7 (Version None)
Quarter: 2012Q2

REPORT INFORMATION
  Report Type: 
  Country: None (occurrence: None)
  Receive Date: 20120413
  Receipt Date: 20120409
  Transmission Date: 20120825
  Serious: No
  Sender: FDA-Public Use
  Company Number: US-PFIZER INC-2012002223

PATIENT
  Sex: Male

DRUGS (3)
  1. SUTENT [Suspect]
     Dosage: 50 MG, 1X/DAY (CYCLE 4 WEEKS ON + 2 OFF, NOW 2 WEEKS ON + 2 OFF)
     Dates: start: 20120101, end: 20120101
  2. SUTENT [Suspect]
     Dosage: 50 MG, 1X/DAY (CYCLE 2 WEEKS ON AND TWO WEEKS OFF)
     Dates: start: 20120129
  3. SUTENT [Suspect]
     Indication: METASTATIC RENAL CELL CARCINOMA
     Dosage: 50 MG, 1X/DAY 4 (CYCLE 4 WEEKS ON AND 2 OFF)
     Route: 048
     Dates: start: 20111212, end: 20120102

REACTIONS (14)
  - NAUSEA [None]
  - RASH [None]
  - FATIGUE [None]
  - ABDOMINAL PAIN [None]
  - STOMATITIS [None]
  - ARTHRALGIA [None]
  - ORAL PAIN [None]
  - BONE PAIN [None]
  - DECREASED APPETITE [None]
  - DYSGEUSIA [None]
  - HYPERTENSION [None]
  - VOMITING [None]
  - FLATULENCE [None]
  - FLANK PAIN [None]
